FAERS Safety Report 20039176 (Version 3)
Quarter: 2022Q1

REPORT INFORMATION
  Report Type: Report from Study
  Country: KR (occurrence: KR)
  Receive Date: 20211105
  Receipt Date: 20220310
  Transmission Date: 20220423
  Serious: Yes (Hospitalization)
  Sender: FDA-Public Use
  Company Number: KR-TAKEDA-2021TUS066807

PATIENT
  Age: 52 Year
  Sex: Female
  Weight: 37 kg

DRUGS (16)
  1. IXAZOMIB [Suspect]
     Active Substance: IXAZOMIB
     Indication: Plasma cell myeloma
     Dosage: 4 MILLIGRAM, QD
     Route: 048
     Dates: start: 20210902
  2. DEXAMETHASONE [Suspect]
     Active Substance: DEXAMETHASONE
     Indication: Plasma cell myeloma
     Dosage: 20 MILLIGRAM, QD
     Route: 048
     Dates: start: 20210902
  3. DEXAMETHASONE [Suspect]
     Active Substance: DEXAMETHASONE
     Dosage: 20 MILLIGRAM, QD
     Route: 042
     Dates: start: 20211007
  4. LENALIDOMIDE [Suspect]
     Active Substance: LENALIDOMIDE
     Indication: Plasma cell myeloma
     Dosage: 25 MILLIGRAM, QD
     Route: 048
     Dates: start: 20210902
  5. PANORIN [Concomitant]
     Indication: Plasma cell myeloma
     Dosage: 60 MILLIGRAM, Q8WEEKS
     Route: 042
  6. CORDARONE [Concomitant]
     Active Substance: AMIODARONE HYDROCHLORIDE
     Indication: Atrial fibrillation
     Dosage: 200 MILLIGRAM
     Route: 048
  7. LIPITOR [Concomitant]
     Active Substance: ATORVASTATIN CALCIUM
     Indication: Angina pectoris
     Dosage: 10 MILLIGRAM
     Route: 048
  8. EZETIMIBE [Concomitant]
     Active Substance: EZETIMIBE
     Indication: Angina pectoris
     Dosage: 10 MILLIGRAM
     Route: 048
  9. ASPIRIN [Concomitant]
     Active Substance: ASPIRIN
     Indication: Angina pectoris
     Dosage: 100 MILLIGRAM
     Route: 048
  10. LAFUTIDINE [Concomitant]
     Active Substance: LAFUTIDINE
     Indication: Dyspepsia
     Dosage: 10 MILLIGRAM
     Route: 048
  11. NEPHVITA [Concomitant]
     Indication: End stage renal disease
     Dosage: UNK
     Route: 048
  12. FEROBA YOU [Concomitant]
     Indication: End stage renal disease
     Dosage: UNK
     Route: 048
  13. ERYTHROPOIETIN [Concomitant]
     Active Substance: ERYTHROPOIETIN
     Indication: Haemodialysis
     Dosage: UNK
     Route: 042
  14. ITOPRIDE [Concomitant]
     Active Substance: ITOPRIDE
     Indication: Diarrhoea
     Dosage: 50 MILLIGRAM, PRN
     Route: 048
     Dates: start: 20211007
  15. Pancron [Concomitant]
     Indication: Diarrhoea
     Dosage: UNK
     Route: 048
     Dates: start: 20211007
  16. LOPMIN [Concomitant]
     Indication: Diarrhoea
     Dosage: 2 MILLIGRAM
     Route: 048
     Dates: start: 20211007, end: 20211011

REACTIONS (1)
  - Arthralgia [Recovered/Resolved]

NARRATIVE: CASE EVENT DATE: 20211008
